FAERS Safety Report 6463587-3 (Version None)
Quarter: 2009Q4

REPORT INFORMATION
  Report Type: 
  Country: None (occurrence: None)
  Receive Date: 20091130
  Receipt Date: 20091130
  Transmission Date: 20100525
  Serious: Yes (Other)
  Sender: FDA-Public Use
  Company Number: None

PATIENT
  Age: 39 Year
  Sex: Female
  Weight: 68.0396 kg

DRUGS (2)
  1. PROAIR HFA [Suspect]
     Indication: ASTHMA
     Dosage: 2 PUFFS 4 HOURS PO  AROUND TWO YEARS
     Route: 048
  2. PROAIR HFA [Suspect]
     Indication: DYSPNOEA
     Dosage: 2 PUFFS 4 HOURS PO  AROUND TWO YEARS
     Route: 048

REACTIONS (3)
  - DEVICE FAILURE [None]
  - DRUG EFFECT DECREASED [None]
  - PRODUCT QUALITY ISSUE [None]
